FAERS Safety Report 23497899 (Version 1)
Quarter: 2024Q1

REPORT INFORMATION
  Report Type: Spontaneous
  Country: US (occurrence: None)
  Receive Date: 20240207
  Receipt Date: 20240207
  Transmission Date: 20240410
  Serious: No
  Sender: FDA-Public Use
  Company Number: US-ROCHE-3435998

PATIENT
  Age: 88 Year
  Sex: Female

DRUGS (1)
  1. XOLAIR [Suspect]
     Active Substance: OMALIZUMAB
     Indication: Product used for unknown indication
     Dosage: LAST INJECTION WAS ON 16/SEP/2023
     Route: 065

REACTIONS (2)
  - Urticaria [Unknown]
  - Arthralgia [Unknown]
